FAERS Safety Report 19355323 (Version 1)
Quarter: 2021Q2

REPORT INFORMATION
  Report Type: Spontaneous
  Country: US (occurrence: US)
  Receive Date: 20210531
  Receipt Date: 20210531
  Transmission Date: 20210717
  Serious: No
  Sender: FDA-Public Use
  Company Number: US-009507513-2105USA006316

PATIENT

DRUGS (2)
  1. INTRON A [Suspect]
     Active Substance: INTERFERON ALFA-2B
     Indication: PAPILLOMA CONJUNCTIVAL
     Dosage: STREGTH 1000000 INTERNATIONA UNITS/MILLILITRE
     Route: 026
  2. INTRON A [Suspect]
     Active Substance: INTERFERON ALFA-2B
     Indication: PAPILLOMA CONJUNCTIVAL
     Dosage: STRENGTH 10000000
     Route: 026

REACTIONS (4)
  - Intercepted medication error [Unknown]
  - No adverse event [Unknown]
  - Product use in unapproved indication [Unknown]
  - Product prescribing issue [Unknown]
